FAERS Safety Report 22631977 (Version 1)
Quarter: 2023Q2

REPORT INFORMATION
  Report Type: Spontaneous
  Country: IT (occurrence: IT)
  Receive Date: 20230623
  Receipt Date: 20230623
  Transmission Date: 20230722
  Serious: Yes (Other)
  Sender: FDA-Public Use
  Company Number: IT-ELI_LILLY_AND_COMPANY-IT202306000620

PATIENT
  Age: 62 Year

DRUGS (2)
  1. PEMETREXED [Suspect]
     Active Substance: PEMETREXED
     Indication: Pleural mesothelioma
     Dosage: UNK UNK, CYCLICAL
     Route: 065
     Dates: start: 20221104, end: 20230301
  2. CISPLATIN [Suspect]
     Active Substance: CISPLATIN
     Indication: Pleural mesothelioma
     Dosage: UNK UNK, CYCLICAL
     Route: 065
     Dates: start: 20221104, end: 20230301

REACTIONS (1)
  - Malignant neoplasm progression [Unknown]
